FAERS Safety Report 26216481 (Version 1)
Quarter: 2025Q4

REPORT INFORMATION
  Report Type: Spontaneous
  Country: CN (occurrence: CN)
  Receive Date: 20251231
  Receipt Date: 20251231
  Transmission Date: 20260118
  Serious: Yes (Other)
  Sender: ROCHE
  Company Number: CN-ROCHE-10000470353

PATIENT
  Age: 65 Year
  Sex: Male

DRUGS (8)
  1. RITUXIMAB [Suspect]
     Active Substance: RITUXIMAB
     Indication: Diffuse large B-cell lymphoma
     Dosage: RECEIVED SIX CYCLES
  2. CYCLOPHOSPHAMIDE [Suspect]
     Active Substance: CYCLOPHOSPHAMIDE
     Indication: Diffuse large B-cell lymphoma
     Dosage: RECEIVED SIX CYCLES
  3. EPIRUBICIN [Suspect]
     Active Substance: EPIRUBICIN
     Indication: Diffuse large B-cell lymphoma
  4. ONCOVIN [Suspect]
     Active Substance: VINCRISTINE SULFATE
     Indication: Diffuse large B-cell lymphoma
  5. PREDNISONE [Suspect]
     Active Substance: PREDNISONE
     Indication: Diffuse large B-cell lymphoma
  6. GEMCITABINE [Concomitant]
     Active Substance: GEMCITABINE
     Dosage: RECEIVED 4 CYCLES
  7. DEXAMETHASONE [Concomitant]
     Active Substance: DEXAMETHASONE
     Dosage: RECEIVED 4 CYCLES
  8. PLATINUM [Concomitant]
     Active Substance: PLATINUM
     Dosage: RECEIVED 4 CYCLES

REACTIONS (5)
  - Neutrophil count decreased [Unknown]
  - Asthenia [Recovering/Resolving]
  - Diffuse large B-cell lymphoma [Unknown]
  - Pyrexia [Recovering/Resolving]
  - Chills [Recovering/Resolving]
